FAERS Safety Report 6371532-4 (Version None)
Quarter: 2009Q3

REPORT INFORMATION
  Report Type: 
  Country: None (occurrence: None)
  Receive Date: 20090923
  Receipt Date: 20081229
  Transmission Date: 20100115
  Serious: Yes (Other)
  Sender: FDA-Public Use
  Company Number: US-ASTRAZENECA-2007UW18377

PATIENT
  Sex: Male

DRUGS (6)
  1. SEROQUEL [Suspect]
     Indication: BIPOLAR DISORDER
     Dosage: 25 MG UP TO 700 MG
     Route: 048
     Dates: start: 20040101, end: 20060101
  2. SEROQUEL [Suspect]
     Indication: SCHIZOPHRENIA
     Dosage: 25 MG UP TO 700 MG
     Route: 048
     Dates: start: 20040101, end: 20060101
  3. SEROQUEL [Suspect]
     Dosage: 25 MG UP TO 700 MG
     Route: 048
     Dates: start: 20070101
  4. SEROQUEL [Suspect]
     Dosage: 25 MG UP TO 700 MG
     Route: 048
     Dates: start: 20070101
  5. ZYPREXA [Concomitant]
     Dates: start: 20010101, end: 20030101
  6. RISPERDAL [Concomitant]

REACTIONS (1)
  - PANCREATITIS ACUTE [None]
